FAERS Safety Report 6078002-1 (Version None)
Quarter: 2009Q1

REPORT INFORMATION
  Report Type: 
  Country: None (occurrence: None)
  Receive Date: 20090213
  Receipt Date: 20090202
  Transmission Date: 20090719
  Serious: Yes (Hospitalization)
  Sender: FDA-Public Use
  Company Number: NO-GENENTECH-277052

PATIENT
  Sex: Female

DRUGS (8)
  1. MABTHERA [Suspect]
     Indication: RHEUMATOID ARTHRITIS
     Dosage: 500 MG, UNK
     Route: 042
     Dates: start: 20071201
  2. MABTHERA [Suspect]
     Dosage: 1000 MG, UNK
     Route: 042
     Dates: end: 20080601
  3. METHOTREXATE [Suspect]
     Indication: RHEUMATOID ARTHRITIS
     Dosage: 20 MG, 1/WEEK
     Route: 048
     Dates: start: 20030101
  4. METHOTREXATE [Suspect]
     Dosage: 15 MG, 1/WEEK
     Route: 048
     Dates: end: 20060601
  5. METHOTREXATE [Suspect]
     Dosage: 10 MG, 1/WEEK
     Dates: start: 20081201
  6. FOLIC ACID [Concomitant]
     Indication: DRUG USE FOR UNKNOWN INDICATION
  7. CALCIGRAN [Concomitant]
     Indication: DRUG USE FOR UNKNOWN INDICATION
  8. PREDNISOLONE [Concomitant]
     Indication: DRUG USE FOR UNKNOWN INDICATION
     Dosage: UNK
     Dates: end: 20080901

REACTIONS (2)
  - GRANULOCYTOPENIA [None]
  - SEPSIS [None]
